FAERS Safety Report 12757761 (Version 2)
Quarter: 2016Q4

REPORT INFORMATION
  Report Type: Spontaneous
  Country: JP (occurrence: JP)
  Receive Date: 20160919
  Receipt Date: 20161010
  Transmission Date: 20170207
  Serious: Yes (Death, Hospitalization, Other)
  Sender: FDA-Public Use
  Company Number: JP-009507513-1606JPN013381

PATIENT
  Age: 72 Year
  Sex: Male

DRUGS (11)
  1. ZETIA [Concomitant]
     Active Substance: EZETIMIBE
     Dosage: 10 MG, QD
     Route: 048
     Dates: start: 201408, end: 20160422
  2. ACTOS [Concomitant]
     Active Substance: PIOGLITAZONE HYDROCHLORIDE
     Dosage: 30 MG, QD
     Route: 048
     Dates: start: 201207, end: 20160422
  3. VAGOSTIGMIN (NEOSTIGMINE BROMIDE) [Concomitant]
     Dosage: 1.5 G, TID
     Route: 048
     Dates: start: 201410, end: 20160422
  4. INSULIN [Concomitant]
     Active Substance: INSULIN NOS
     Dosage: DAILY DOSAGE UNKNOWN
     Route: 065
  5. GASMOTIN [Concomitant]
     Active Substance: MOSAPRIDE CITRATE
     Dosage: 5 MG, TID
     Route: 048
     Dates: start: 201203, end: 20160422
  6. HIBERNA [Concomitant]
     Active Substance: PROMETHAZINE HYDROCHLORIDE
     Dosage: 50 MG, TID
     Route: 048
     Dates: start: 2010, end: 20160422
  7. MAGNESIUM OXIDE. [Concomitant]
     Active Substance: MAGNESIUM OXIDE
     Dosage: 0.5 G, TID
     Route: 048
     Dates: start: 2010, end: 20160422
  8. LONASEN [Concomitant]
     Active Substance: BLONANSERIN
     Dosage: 8 MG, TID
     Route: 048
     Dates: start: 201202, end: 20160422
  9. JANUVIA [Suspect]
     Active Substance: SITAGLIPTIN PHOSPHATE
     Indication: DIABETES MELLITUS
     Dosage: 100 MG, QD
     Route: 048
     Dates: start: 201212, end: 20160422
  10. ZYLORIC [Concomitant]
     Active Substance: ALLOPURINOL
     Dosage: 100 MG, QD
     Route: 048
     Dates: start: 201403, end: 20160422
  11. URSO [Concomitant]
     Active Substance: URSODIOL
     Dosage: 200 MG, TID
     Route: 048
     Dates: start: 201303, end: 20160422

REACTIONS (3)
  - Cardiac failure [Fatal]
  - Pemphigoid [Recovering/Resolving]
  - Diabetes mellitus inadequate control [Unknown]

NARRATIVE: CASE EVENT DATE: 201512
